FAERS Safety Report 4964058-3 (Version None)
Quarter: 2006Q1

REPORT INFORMATION
  Report Type: 
  Country: None (occurrence: None)
  Receive Date: 20060330
  Receipt Date: 20060309
  Transmission Date: 20060701
  Serious: Yes (Hospitalization)
  Sender: FDA-Public Use
  Company Number: US200603002100

PATIENT
  Sex: Female

DRUGS (2)
  1. HUMULIN N [Suspect]
     Dosage: 20 U EACH MORNING
     Dates: start: 20020101, end: 20051201
  2. NOVOLIN R (INSULIN HUMAN INJECTION, ISOPHANE) [Concomitant]

REACTIONS (2)
  - BLOOD GLUCOSE INCREASED [None]
  - URINARY TRACT INFECTION [None]
